FAERS Safety Report 7643105-4 (Version None)
Quarter: 2011Q3

REPORT INFORMATION
  Report Type: 
  Country: None (occurrence: None)
  Receive Date: 20110728
  Receipt Date: 20110725
  Transmission Date: 20111222
  Serious: Yes (Other)
  Sender: FDA-Public Use
  Company Number: IT-BRISTOL-MYERS SQUIBB COMPANY-15924707

PATIENT
  Age: 77 Year
  Sex: Male

DRUGS (2)
  1. IPILIMUMAB [Suspect]
     Indication: MALIGNANT MELANOMA
  2. FOTEMUSTINE [Suspect]
     Indication: MALIGNANT MELANOMA

REACTIONS (1)
  - NEUTROPENIA [None]
